FAERS Safety Report 9598792 (Version 2)
Quarter: 2015Q1

REPORT INFORMATION
  Report Type: Spontaneous
  Country: US (occurrence: US)
  Receive Date: 20131004
  Receipt Date: 20150304
  Transmission Date: 20150721
  Serious: Yes (Hospitalization, Other)
  Sender: FDA-Public Use
  Company Number: US-AMGEN-USASP2013026270

PATIENT
  Age: 25 Year
  Sex: Male
  Weight: 112.4 kg

DRUGS (4)
  1. ENBREL [Suspect]
     Active Substance: ETANERCEPT
     Indication: TAKAYASU^S ARTERITIS
  2. PREDNISONE. [Concomitant]
     Active Substance: PREDNISONE
     Indication: TAKAYASU^S ARTERITIS
     Dosage: 17.5 MG, QD
     Route: 048
     Dates: start: 201201
  3. ENBREL [Suspect]
     Active Substance: ETANERCEPT
     Indication: RHEUMATOID ARTHRITIS
     Dosage: 0.98 MG, QWK
     Route: 058
     Dates: start: 20120921, end: 201311
  4. METHOTREXATE [Concomitant]
     Active Substance: METHOTREXATE
     Indication: TAKAYASU^S ARTERITIS
     Dosage: 20 MG, QWK
     Route: 048
     Dates: start: 201207

REACTIONS (11)
  - Bone density decreased [Recovered/Resolved]
  - Post procedural complication [Unknown]
  - Joint injury [Recovered/Resolved]
  - Tooth infection [Not Recovered/Not Resolved]
  - Osteonecrosis [Unknown]
  - Post procedural haemorrhage [Unknown]
  - Influenza [Unknown]
  - Respiratory tract infection [Recovered/Resolved]
  - Multiple allergies [Recovered/Resolved]
  - Pneumonia [Recovered/Resolved]
  - Poor peripheral circulation [Not Recovered/Not Resolved]

NARRATIVE: CASE EVENT DATE: 201304
